FAERS Safety Report 25814176 (Version 1)
Quarter: 2025Q3

REPORT INFORMATION
  Report Type: Spontaneous
  Country: EU (occurrence: EU)
  Receive Date: 20250917
  Receipt Date: 20250917
  Transmission Date: 20251021
  Serious: Yes (Life-Threatening, Hospitalization, Other)
  Sender: TEVA
  Company Number: None

PATIENT
  Age: 68 Year
  Sex: Female

DRUGS (2)
  1. PEMETREXED [Suspect]
     Active Substance: PEMETREXED
     Indication: Lung carcinoma cell type unspecified stage IV
     Route: 042
     Dates: start: 20250123, end: 20250702
  2. KEYTRUDA [Suspect]
     Active Substance: PEMBROLIZUMAB
     Indication: Lung carcinoma cell type unspecified stage IV
     Dosage: BATCH AND LOT TESTED AND FOUND WITHIN SPECIFICATIONS
     Route: 042
     Dates: start: 20250123, end: 20250702

REACTIONS (9)
  - Sepsis [Not Recovered/Not Resolved]
  - Hypoxia [Not Recovered/Not Resolved]
  - Anaemia [Recovering/Resolving]
  - Loss of consciousness [Recovered/Resolved with Sequelae]
  - Performance status decreased [Not Recovered/Not Resolved]
  - Traumatic fracture [Not Recovered/Not Resolved]
  - Urinary tract infection [Recovering/Resolving]
  - Sopor [Not Recovered/Not Resolved]
  - Septic shock [Recovered/Resolved]

NARRATIVE: CASE EVENT DATE: 20250719
